FAERS Safety Report 22787615 (Version 2)
Quarter: 2023Q4

REPORT INFORMATION
  Report Type: Spontaneous
  Country: CN (occurrence: CN)
  Receive Date: 20230804
  Receipt Date: 20231006
  Transmission Date: 20240110
  Serious: Yes (Life-Threatening)
  Sender: FDA-Public Use
  Company Number: CN-BAYER-2023A108793

PATIENT
  Age: 73 Year
  Sex: Female

DRUGS (1)
  1. ULTRAVIST [Suspect]
     Active Substance: IOPROMIDE
     Dosage: UNK, ONCE
     Dates: start: 20230728, end: 20230728

REACTIONS (10)
  - Shock [Recovering/Resolving]
  - Anal incontinence [None]
  - Urinary incontinence [None]
  - Sinus arrhythmia [None]
  - Defect conduction intraventricular [None]
  - Acute myocardial infarction [None]
  - Atrial hypertrophy [None]
  - Electrocardiogram ST segment depression [None]
  - Electrocardiogram ST segment elevation [None]
  - Electrocardiogram T wave abnormal [None]

NARRATIVE: CASE EVENT DATE: 20230728
